FAERS Safety Report 8344837-5 (Version None)
Quarter: 2012Q2

REPORT INFORMATION
  Report Type: 
  Country: None (occurrence: None)
  Receive Date: 20120508
  Receipt Date: 20120208
  Transmission Date: 20120825
  Serious: Yes (Hospitalization)
  Sender: FDA-Public Use
  Company Number: US-GLAXOSMITHKLINE-A0965542A

PATIENT
  Age: 69 Year
  Sex: Female
  Weight: 61.4 kg

DRUGS (3)
  1. FLOLAN [Suspect]
     Indication: PULMONARY ARTERIAL HYPERTENSION
     Dosage: 36NGKM UNKNOWN
     Route: 042
     Dates: start: 20100127
  2. COUMADIN [Concomitant]
  3. TRACLEER [Concomitant]

REACTIONS (2)
  - PNEUMONIA [None]
  - EPISTAXIS [None]
